FAERS Safety Report 24045159 (Version 3)
Quarter: 2025Q2

REPORT INFORMATION
  Report Type: Report from Study
  Country: CA (occurrence: CA)
  Receive Date: 20240703
  Receipt Date: 20250409
  Transmission Date: 20250717
  Serious: Yes (Other)
  Sender: UCB
  Company Number: CA-UCBSA-2023039093

PATIENT
  Sex: Female
  Weight: 85.3 kg

DRUGS (7)
  1. BIMEKIZUMAB [Suspect]
     Active Substance: BIMEKIZUMAB
     Indication: Psoriasis
     Dosage: 320 MILLIGRAM, EV 4 WEEKSX4
     Route: 058
     Dates: start: 20230321
  2. BIMEKIZUMAB [Suspect]
     Active Substance: BIMEKIZUMAB
     Dosage: 320 MILLIGRAM, EV 4 WEEKSX4, MAINTENANCE DOSE
     Route: 058
     Dates: end: 2024
  3. BIMEKIZUMAB [Suspect]
     Active Substance: BIMEKIZUMAB
     Dosage: 320 MILLIGRAM, EV 4 WEEKSX4
     Route: 058
     Dates: start: 20240528
  4. BIMEKIZUMAB [Suspect]
     Active Substance: BIMEKIZUMAB
     Dosage: 320 MILLIGRAM, EV 6 WEEKS
     Route: 058
  5. SODIUM METABISULFITE [Concomitant]
     Active Substance: SODIUM METABISULFITE
     Indication: Product used for unknown indication
  6. NICKEL [Concomitant]
     Active Substance: NICKEL
     Indication: Product used for unknown indication
  7. PRAMOXINE [Concomitant]
     Active Substance: PRAMOXINE
     Indication: Product used for unknown indication

REACTIONS (8)
  - Suicidal ideation [Unknown]
  - Psoriasis [Recovering/Resolving]
  - Dry mouth [Unknown]
  - Candida infection [Unknown]
  - Tooth loss [Unknown]
  - Alopecia [Unknown]
  - Off label use [Unknown]
  - Inappropriate schedule of product administration [Unknown]

NARRATIVE: CASE EVENT DATE: 20230101
